FAERS Safety Report 17548759 (Version 1)
Quarter: 2020Q1

REPORT INFORMATION
  Report Type: Spontaneous
  Country: US (occurrence: US)
  Receive Date: 20200317
  Receipt Date: 20200317
  Transmission Date: 20200409
  Serious: No
  Sender: FDA-Public Use
  Company Number: US-ALLERGAN-1908918US

PATIENT
  Sex: Female

DRUGS (7)
  1. NORCO [Suspect]
     Active Substance: ACETAMINOPHEN\HYDROCODONE BITARTRATE
     Indication: PAIN
     Dosage: 7.5 MG
     Route: 048
     Dates: end: 201607
  2. FENTANYL TRANSDERMAL SYSTEM [Concomitant]
     Active Substance: FENTANYL
     Indication: SPINAL OPERATION
     Dosage: UNK
     Route: 065
  3. NORCO [Suspect]
     Active Substance: ACETAMINOPHEN\HYDROCODONE BITARTRATE
     Indication: MUSCLE SPASMS
     Dosage: 10 MG
     Route: 048
     Dates: end: 201607
  4. SKELAXIN [Concomitant]
     Active Substance: METAXALONE
     Indication: SPINAL OPERATION
     Dosage: UNK
     Route: 065
  5. NORCO [Suspect]
     Active Substance: ACETAMINOPHEN\HYDROCODONE BITARTRATE
     Indication: BACK PAIN
  6. FLEXERIL [Concomitant]
     Active Substance: CYCLOBENZAPRINE HYDROCHLORIDE
     Indication: PAIN
     Dosage: 10 MG
     Route: 065
  7. FLEXERIL [Concomitant]
     Active Substance: CYCLOBENZAPRINE HYDROCHLORIDE
     Indication: MUSCLE SPASMS

REACTIONS (3)
  - Feeling abnormal [Recovered/Resolved]
  - Drug tolerance decreased [Recovered/Resolved]
  - Drug ineffective [Unknown]
